FAERS Safety Report 21126619 (Version 1)
Quarter: 2022Q3

REPORT INFORMATION
  Report Type: Report from Study
  Country: GB (occurrence: GB)
  Receive Date: 20220725
  Receipt Date: 20220725
  Transmission Date: 20221026
  Serious: Yes (Hospitalization, Other)
  Sender: FDA-Public Use
  Company Number: GB-ROCHE-3001491

PATIENT
  Age: 43 Year
  Sex: Female

DRUGS (28)
  1. DOCETAXEL [Suspect]
     Active Substance: DOCETAXEL
     Indication: Breast cancer metastatic
     Dosage: UNIT DOSE: 148 MG, FREQUENCY TIME-3 WEEK, DURATION-85 DAYS
     Route: 042
     Dates: start: 20171108, end: 20180131
  2. PERTUZUMAB [Suspect]
     Active Substance: PERTUZUMAB
     Indication: Breast cancer metastatic
     Dosage: UNIT DOSE: 840 MG, FREQUENCY TIME-3 WEEK, DURATION-22 DAYS
     Route: 042
     Dates: start: 20171108, end: 20171129
  3. PERTUZUMAB [Suspect]
     Active Substance: PERTUZUMAB
     Dosage: UNIT DOSE: 420 MG, FREQUENCY TIME-3 WEEK, DURATION-4 YRS
     Route: 042
     Dates: start: 20171129, end: 20210924
  4. PERTUZUMAB [Suspect]
     Active Substance: PERTUZUMAB
     Dosage: UNIT DOSE: 840 MG, FREQUENCY TIME-3 WEEK,
     Route: 042
     Dates: start: 20181120
  5. TRASTUZUMAB [Suspect]
     Active Substance: TRASTUZUMAB
     Indication: Breast cancer metastatic
     Dosage: UNIT DOSE: 651 MG, FREQUENCY TIME-3 WEEK, DURATION-4 YRS
     Route: 042
     Dates: start: 20171129, end: 20210903
  6. TRASTUZUMAB [Suspect]
     Active Substance: TRASTUZUMAB
     Dosage: UNIT DOSE: 882 MG, FREQUENCY TIME-3 WEEK, DURATION-22 DAYS
     Route: 042
     Dates: start: 20171108, end: 20171129
  7. CALCIUM CARBONATE [Concomitant]
     Active Substance: CALCIUM CARBONATE
     Indication: Product used for unknown indication
     Dosage: 2 DOSAGE FORMS DAILY; 1,5G + 400 UNITS, UNIT DOSE : 1 DF, BD
     Route: 048
  8. BECLOMETHASONE DIPROPIONATE [Concomitant]
     Active Substance: BECLOMETHASONE DIPROPIONATE
     Indication: Product used for unknown indication
     Dosage: 4 DOSAGE FORMS DAILY; 2 PUFF, FREQUENCY-2, FREQUENCY TIME-1 DAY,
     Route: 065
  9. CLONAZEPAM [Concomitant]
     Active Substance: CLONAZEPAM
     Indication: Product used for unknown indication
     Dosage: 250 MILLIGRAM DAILY; UNIT DOSE : 250 MG
     Route: 048
     Dates: start: 202006
  10. ERYTHROMYCIN [Concomitant]
     Active Substance: ERYTHROMYCIN
     Indication: Vascular device infection
     Dosage: 2000 MILLIGRAM DAILY; DURATION 183 DAYS, UNIT DOSE : 500 MG, 4 TIMES A DAY
     Route: 048
     Dates: start: 2020, end: 202007
  11. LACTULOSE [Concomitant]
     Active Substance: LACTULOSE
     Indication: Product used for unknown indication
     Dosage: 20 ML DAILY; UNIT DOSE : 10 ML, BD
     Route: 048
  12. LINEZOLID [Concomitant]
     Active Substance: LINEZOLID
     Indication: Vascular device infection
     Dosage: 1200 MILLIGRAM DAILY; DURATION 6 DAYS, UNIT DOSE : 600 MG, BD
     Route: 048
     Dates: start: 20191125, end: 20191130
  13. METFORMIN [Concomitant]
     Active Substance: METFORMIN HYDROCHLORIDE
     Indication: Product used for unknown indication
     Dosage: 1000 MILLIGRAM DAILY; UNIT DOSE : 1000 MG, OD
     Route: 065
  14. MIRTAZAPINE [Concomitant]
     Active Substance: MIRTAZAPINE
     Indication: Product used for unknown indication
     Dosage: 45 MILLIGRAM DAILY; UNIT DOSE : 45 MG, OD
     Route: 048
  15. MORPHINE [Concomitant]
     Active Substance: MORPHINE
     Indication: Vomiting
     Dosage: UNIT DOSE: 5 MG, DURATION-1 DAYS
     Route: 042
     Dates: start: 20181002, end: 20181002
  16. MORPHINE [Concomitant]
     Active Substance: MORPHINE
     Indication: Diarrhoea
  17. NITROFURANTOIN [Concomitant]
     Active Substance: NITROFURANTOIN
     Indication: Urinary tract infection
     Dosage: 200 MILLIGRAM DAILY; DURATION 7 DAYS, UNIT DOSE : 50MG, 4 TIMES A DAY
     Route: 048
     Dates: start: 20181103, end: 20181109
  18. OMEPRAZOLE [Concomitant]
     Active Substance: OMEPRAZOLE
     Indication: Product used for unknown indication
     Dosage: 40 MILLIGRAM DAILY; UNIT DOSE : 40 MG
     Route: 048
     Dates: start: 201710
  19. ONDANSETRON [Concomitant]
     Active Substance: ONDANSETRON
     Indication: Diarrhoea
     Dosage: UNIT DOSE: 4 MG, DURATION-1 DAY,
     Route: 042
     Dates: start: 20181002, end: 20181002
  20. ONDANSETRON [Concomitant]
     Active Substance: ONDANSETRON
     Indication: Vomiting
  21. OXYCODONE [Concomitant]
     Active Substance: OXYCODONE
     Indication: Pain
     Dosage: 220 MILLIGRAM DAILY; UNIT DOSE : 110 MG, BD
     Route: 048
  22. QUETIAPINE [Concomitant]
     Active Substance: QUETIAPINE
     Indication: Depressed mood
     Dosage: 150 MILLIGRAM DAILY; UNIT DOSE : 150 MG, OD
     Route: 048
     Dates: start: 2020
  23. QUETIAPINE [Concomitant]
     Active Substance: QUETIAPINE
     Dosage: 100 MILLIGRAM DAILY; UNIT DOSE : 100 MG, OD
     Route: 048
     Dates: end: 2020
  24. RAMIPRIL [Concomitant]
     Active Substance: RAMIPRIL
     Indication: Product used for unknown indication
     Dosage: 1.25 MILLIGRAM DAILY; UNIT DOSE : 1.25 MG, OD
     Route: 048
  25. ALBUTEROL [Concomitant]
     Active Substance: ALBUTEROL
     Indication: Product used for unknown indication
     Dosage: 2 PUFF, FREQUENCY-1, FREQUENCY TIME-1 AS REQUIRED
     Route: 065
  26. SIMVASTATIN [Concomitant]
     Active Substance: SIMVASTATIN
     Indication: Product used for unknown indication
     Dosage: 40 MILLIGRAM DAILY; UNIT DOSE : 40 MG, OD
     Route: 048
  27. SODIUM PICOSULFATE [Concomitant]
     Active Substance: SODIUM PICOSULFATE
     Indication: Constipation
     Dosage: 10 OTHER, FREQUENCY-1, FREQUENCY TIME-1 DAY,
     Route: 048
  28. VANCOMYCIN [Concomitant]
     Active Substance: VANCOMYCIN
     Indication: Vascular device infection
     Dosage: 3500 MILLIGRAM DAILY; UNIT DOSE : 1750 MG, BD
     Route: 042
     Dates: start: 20200612, end: 202006

REACTIONS (5)
  - Appendicitis [Recovered/Resolved]
  - Abdominal pain [Recovered/Resolved]
  - Vascular device infection [Recovered/Resolved]
  - COVID-19 [Recovered/Resolved with Sequelae]
  - Asthma [Recovered/Resolved]

NARRATIVE: CASE EVENT DATE: 20211028
